FAERS Safety Report 23396870 (Version 1)
Quarter: 2024Q1

REPORT INFORMATION
  Report Type: Spontaneous
  Country: DE (occurrence: DE)
  Receive Date: 20240112
  Receipt Date: 20240112
  Transmission Date: 20240409
  Serious: Yes (Death)
  Sender: FDA-Public Use
  Company Number: DE-MYLANLABS-2024M1003346

PATIENT
  Age: 69 Year
  Sex: Male

DRUGS (12)
  1. FLUOROURACIL [Suspect]
     Active Substance: FLUOROURACIL
     Indication: Cholangiocarcinoma
     Dosage: 400 MILLIGRAM/SQ. METER; 400?MG/M2 AS BOLUS EVERY 2?WEEKS AS A PART OF  FOLFIRI REGIMEN
     Route: 065
     Dates: start: 202002
  2. FLUOROURACIL [Suspect]
     Active Substance: FLUOROURACIL
     Dosage: 3000 MILLIGRAM/SQ. METER; 3000?MG/M2 AS 48H INFUSION EVERY 2?WEEKS AS A PART OF FOLFOX REGIMEN
     Route: 065
     Dates: start: 201907, end: 202002
  3. FLUOROURACIL [Suspect]
     Active Substance: FLUOROURACIL
     Dosage: 2400 MILLIGRAM/SQ. METER; 2400?MG/M2 AS 48H INFUSION EVERY 2?WEEKS AS A PART OF  FOLFIRI REGIMEN
     Route: 065
     Dates: start: 202002
  4. IRINOTECAN [Suspect]
     Active Substance: IRINOTECAN
     Indication: Cholangiocarcinoma
     Dosage: 180 MILLIGRAM/SQ. METER; EVERY 2?WEEKS AS A PART OF  FOLFIRI REGIMEN
     Route: 065
     Dates: start: 202002
  5. AZACITIDINE [Suspect]
     Active Substance: AZACITIDINE
     Indication: Acute myeloid leukaemia
     Dosage: 75 MILLIGRAM/SQ. METER
     Route: 065
     Dates: start: 202109
  6. CISPLATIN [Suspect]
     Active Substance: CISPLATIN
     Indication: Cholangiocarcinoma
     Dosage: 25 MILLIGRAM/SQ. METER; ON DAY?1 AND 8
     Route: 065
     Dates: start: 201711, end: 201907
  7. GEMCITABINE [Suspect]
     Active Substance: GEMCITABINE
     Indication: Cholangiocarcinoma
     Dosage: 1000 MILLIGRAM/SQ. METER; ON DAY?1 AND 8
     Route: 065
     Dates: start: 201711, end: 201907
  8. OXALIPLATIN [Suspect]
     Active Substance: OXALIPLATIN
     Indication: Cholangiocarcinoma
     Dosage: 100 MILLIGRAM/SQ. METER; EVERY 2?WEEKS AS A PART OF FOLFOX REGIMEN
     Route: 065
     Dates: start: 201907, end: 202002
  9. FOLIC ACID [Suspect]
     Active Substance: FOLIC ACID
     Indication: Cholangiocarcinoma
     Dosage: 400 MILLIGRAM/SQ. METER; EVERY 2?WEEKS AS A PART OF FOLFOX REGIMEN
     Route: 065
     Dates: start: 201907, end: 202002
  10. FOLIC ACID [Suspect]
     Active Substance: FOLIC ACID
     Dosage: 400 MILLIGRAM/SQ. METER; EVERY 2?WEEKS AS A PART OF  FOLFIRI REGIMEN
     Route: 065
     Dates: start: 202002
  11. PEMIGATINIB [Concomitant]
     Active Substance: PEMIGATINIB
     Indication: Cholangiocarcinoma
     Dosage: 13.5 MILLIGRAM, QD; FOR 2?WEEKS, FOLLOWED BY 1?WEEK PAUSE
     Route: 065
     Dates: start: 202005
  12. PEMIGATINIB [Concomitant]
     Active Substance: PEMIGATINIB
     Dosage: 9 MILLIGRAM, QD; FOR 2?WEEKS, FOLLOWED BY 1?WEEK PAUSE
     Route: 065

REACTIONS (4)
  - Acute myeloid leukaemia [Fatal]
  - Drug ineffective [Fatal]
  - Pneumonia [Fatal]
  - Disease progression [Fatal]

NARRATIVE: CASE EVENT DATE: 20210101
